FAERS Safety Report 16093162 (Version 8)
Quarter: 2022Q1

REPORT INFORMATION
  Report Type: Spontaneous
  Country: GB (occurrence: GB)
  Receive Date: 20190320
  Receipt Date: 20220225
  Transmission Date: 20220423
  Serious: Yes (Death, Life-Threatening, Hospitalization, Disabling, Other)
  Sender: FDA-Public Use
  Company Number: GB-EMA-DD-20190306-HV_A-120321

PATIENT
  Age: 47 Year
  Sex: Female

DRUGS (16)
  1. LOSARTAN [Suspect]
     Active Substance: LOSARTAN
     Indication: Hypertension
     Dosage: 100 MILLIGRAM DAILY;
     Route: 048
     Dates: end: 20180928
  2. LOSARTAN [Suspect]
     Active Substance: LOSARTAN
     Indication: Schizophrenia
     Dosage: 200 MILLIGRAM DAILY;
     Route: 048
     Dates: start: 20170317, end: 20180928
  3. LANSOPRAZOLE [Suspect]
     Active Substance: LANSOPRAZOLE
     Indication: Blood cholesterol increased
     Dosage: 30 MILLIGRAM DAILY;  AM
     Route: 065
     Dates: end: 20180928
  4. LANSOPRAZOLE [Suspect]
     Active Substance: LANSOPRAZOLE
     Indication: Gastrooesophageal reflux disease
     Dosage: 40 MILLIGRAM DAILY; THERAPY START AND END DATE: NOT ASKED
     Route: 048
  5. EZETIMIBE [Suspect]
     Active Substance: EZETIMIBE
     Indication: Blood cholesterol increased
     Dosage: 10 MILLIGRAM DAILY;
     Route: 048
     Dates: end: 20180928
  6. PRAVASTATIN [Suspect]
     Active Substance: PRAVASTATIN
     Indication: Blood cholesterol increased
     Dosage: 40 MILLIGRAM DAILY; PM, QHS
     Route: 048
  7. PRAVASTATIN [Suspect]
     Active Substance: PRAVASTATIN
     Indication: Depression
     Dosage: 50 MILLIGRAM DAILY; THERAPY END DATE: ASKU
     Route: 048
     Dates: start: 201709
  8. PRAVASTATIN [Suspect]
     Active Substance: PRAVASTATIN
     Dosage: 40 MILLIGRAM DAILY; THERAPY START AND END DATE: ASKU
     Route: 048
  9. PRAVASTATIN [Suspect]
     Active Substance: PRAVASTATIN
     Dosage: 40 MILLIGRAM DAILY; THERAPY START AND END DATE: ASKU
     Route: 048
  10. FELODIPINE [Suspect]
     Active Substance: FELODIPINE
     Indication: Hypertension
     Dosage: 10 MILLIGRAM DAILY;
     Route: 048
     Dates: end: 20180928
  11. SERTRALINE [Suspect]
     Active Substance: SERTRALINE HYDROCHLORIDE
     Indication: Depression
     Dosage: 50 MILLIGRAM DAILY; 50 MG, AM.
     Route: 048
     Dates: start: 201709, end: 20180928
  12. AMLODIPINE [Suspect]
     Active Substance: AMLODIPINE BESYLATE
     Indication: Hypertension
     Dosage: 100 MILLIGRAM DAILY; 100 MG, QD, UNTIL 28-SEP-2018
     Route: 048
     Dates: start: 20180928, end: 20180928
  13. HUMALOG MIX50/50 [Suspect]
     Active Substance: INSULIN LISPRO
     Indication: Diabetes mellitus
     Dosage: 180 IU (INTERNATIONAL UNIT) DAILY;
     Route: 048
     Dates: end: 20180928
  14. HUMALOG MIX50/50 [Suspect]
     Active Substance: INSULIN LISPRO
     Dates: end: 20180928
  15. CLOZARIL [Suspect]
     Active Substance: CLOZAPINE
     Indication: Schizophrenia
     Dosage: 200 MILLIGRAM DAILY; PM
     Route: 048
     Dates: start: 20170317, end: 20180928
  16. CLOZARIL [Suspect]
     Active Substance: CLOZAPINE
     Dosage: 100 MILLIGRAM DAILY;
     Route: 048
     Dates: end: 20180928

REACTIONS (8)
  - Multiple organ dysfunction syndrome [Fatal]
  - Pneumonia [Fatal]
  - Loss of consciousness [Fatal]
  - Incorrect route of product administration [Fatal]
  - Intentional product misuse [Fatal]
  - Overdose [Fatal]
  - Medication error [Fatal]
  - Off label use [Fatal]

NARRATIVE: CASE EVENT DATE: 20180101
